FAERS Safety Report 5748551-1 (Version None)
Quarter: 2008Q2

REPORT INFORMATION
  Report Type: 
  Country: None (occurrence: None)
  Receive Date: 20080521
  Receipt Date: 20080512
  Transmission Date: 20081010
  Serious: Yes (Other)
  Sender: FDA-Public Use
  Company Number: 2008AP001174

PATIENT
  Age: 39 Year
  Sex: Male

DRUGS (4)
  1. PAROXETINE HCL [Suspect]
     Indication: ANXIETY
     Dosage: 40 MG QD PO
     Route: 048
     Dates: start: 20071201
  2. PAROXETINE HCL [Suspect]
     Indication: STRESS
     Dosage: 40 MG QD PO
     Route: 048
     Dates: start: 20071201
  3. CLONAZEPAM [Concomitant]
  4. PAROXETINE HCL [Concomitant]

REACTIONS (6)
  - ALOPECIA [None]
  - CONDITION AGGRAVATED [None]
  - DRUG WITHDRAWAL SYNDROME [None]
  - FEELING ABNORMAL [None]
  - PSORIASIS [None]
  - RASH [None]
